FAERS Safety Report 8307491-4 (Version None)
Quarter: 2012Q2

REPORT INFORMATION
  Report Type: 
  Country: None (occurrence: None)
  Receive Date: 20120424
  Receipt Date: 20120418
  Transmission Date: 20120825
  Serious: Yes (Other)
  Sender: FDA-Public Use
  Company Number: DK-PFIZER INC-2011006510

PATIENT
  Age: 17 Year
  Sex: Female

DRUGS (14)
  1. CYCLOPHOSPHAMIDE [Suspect]
     Indication: HODGKIN'S DISEASE
     Dosage: 750 MG, UNK
     Route: 042
     Dates: start: 20060703, end: 20060904
  2. POTASSIUM CHLORIDE [Concomitant]
     Dosage: UNK
  3. ETOPOSIDE [Suspect]
     Indication: HODGKIN'S DISEASE
     Dosage: 180 MG, UNK
     Route: 042
     Dates: start: 20060508, end: 20060609
  4. MESNA [Suspect]
     Indication: HODGKIN'S DISEASE
     Dosage: 200 MG, UNK
     Route: 042
     Dates: start: 20060703, end: 20060904
  5. MESNA [Suspect]
     Dosage: 230 MG, UNK
     Route: 042
     Dates: start: 20060925, end: 20061003
  6. CYCLOPHOSPHAMIDE [Suspect]
     Dosage: 775 MG, UNK
     Route: 042
     Dates: start: 20060925, end: 20061003
  7. PREDNISONE [Suspect]
     Indication: HODGKIN'S DISEASE
     Dosage: 35 + 25 + 25 MG
     Route: 048
     Dates: start: 20060508, end: 20060703
  8. PREDNISONE [Suspect]
     Dosage: 20 MG, 3X/DAY
     Route: 048
     Dates: start: 20060703, end: 20060828
  9. PREDNISONE [Suspect]
     Dosage: UNK
     Route: 048
     Dates: end: 20061010
  10. PROCARBAZINE HYDROCHLORIDE [Suspect]
     Indication: HODGKIN'S DISEASE
     Dosage: 50 MG THREE TIMES DAILY
     Route: 048
     Dates: start: 20060703, end: 20061010
  11. GLUCOSE ^SAD^ [Concomitant]
     Indication: FLUID REPLACEMENT
     Dosage: 123 ML, UNK
  12. NATRIUMFLUORID ^ACO LAKEMEDEL^ [Concomitant]
     Dosage: UNK
  13. ONCOVIN [Suspect]
     Indication: HODGKIN'S DISEASE
     Dosage: 2 MG, UNK
     Route: 040
     Dates: start: 20060508, end: 20061003
  14. ADRIAMYCIN PFS [Suspect]
     Indication: HODGKIN'S DISEASE
     Dosage: 57.5MG
     Route: 042
     Dates: start: 20060508, end: 20060619

REACTIONS (8)
  - INTERVERTEBRAL DISC PROTRUSION [None]
  - OSTEONECROSIS [None]
  - PERTUSSIS [None]
  - FATIGUE [None]
  - PAIN IN EXTREMITY [None]
  - BACK PAIN [None]
  - LYMPHADENOPATHY [None]
  - ARTHRALGIA [None]
